FAERS Safety Report 21395832 (Version 1)
Quarter: 2022Q3

REPORT INFORMATION
  Report Type: Spontaneous
  Country: CA (occurrence: CA)
  Receive Date: 20220930
  Receipt Date: 20220930
  Transmission Date: 20221026
  Serious: Yes (Life-Threatening, Hospitalization, Other)
  Sender: FDA-Public Use
  Company Number: CA-SA-SAC20220928001899

PATIENT
  Age: 83 Year
  Sex: Female
  Weight: 62 kg

DRUGS (18)
  1. LOVENOX [Suspect]
     Active Substance: ENOXAPARIN SODIUM
     Indication: Atrial fibrillation
     Dosage: 60 MG, BID
     Route: 065
  2. ACETAMINOPHEN [Concomitant]
     Active Substance: ACETAMINOPHEN
  3. ASPIRIN [Concomitant]
     Active Substance: ASPIRIN
  4. ATORVASTATIN [Concomitant]
     Active Substance: ATORVASTATIN
  5. BISACODYL [Concomitant]
     Active Substance: BISACODYL
     Route: 065
  6. CANNABIDIOL\HERBALS [Concomitant]
     Active Substance: CANNABIDIOL\HERBALS
  7. DIMENHYDRINATE [Concomitant]
     Active Substance: DIMENHYDRINATE
  8. HYDROCORTISONE [Concomitant]
     Active Substance: HYDROCORTISONE
  9. HYDROMORPHONE [Concomitant]
     Active Substance: HYDROMORPHONE
  10. LORAZEPAM [Concomitant]
     Active Substance: LORAZEPAM
  11. MAGNESIUM OXIDE [Concomitant]
     Active Substance: MAGNESIUM OXIDE
  12. METOPROLOL [Concomitant]
     Active Substance: METOPROLOL
  13. NITROGLYCERIN [Concomitant]
     Active Substance: NITROGLYCERIN
  14. OXAZEPAM [Concomitant]
     Active Substance: OXAZEPAM
  15. PANTOPRAZOLE [Concomitant]
     Active Substance: PANTOPRAZOLE
  16. PLAVIX [Concomitant]
     Active Substance: CLOPIDOGREL BISULFATE
  17. RAMIPRIL [Concomitant]
     Active Substance: RAMIPRIL
  18. XARELTO [Concomitant]
     Active Substance: RIVAROXABAN

REACTIONS (4)
  - Device embolisation [Recovered/Resolved]
  - Haemorrhage [Recovered/Resolved]
  - Haematoma [Recovered/Resolved]
  - Transfusion [Recovered/Resolved]
